FAERS Safety Report 8282156-6 (Version None)
Quarter: 2012Q1

REPORT INFORMATION
  Report Type: 
  Country: None (occurrence: None)
  Receive Date: 20120323
  Receipt Date: 20120315
  Transmission Date: 20120608
  Serious: Yes (Other)
  Sender: FDA-Public Use
  Company Number: 2011028797

PATIENT
  Age: 60 Year
  Sex: Female
  Weight: 106.5953 kg

DRUGS (49)
  1. HIZENTRA [Suspect]
  2. NORTRIPTYLINE HCL [Concomitant]
  3. PRAVASTATIN [Concomitant]
  4. FLONASE [Concomitant]
  5. ADVAIR DISKUS 100/50 [Concomitant]
  6. CLARITIN [Concomitant]
  7. FOLIC ACID [Concomitant]
  8. HIZENTRA [Suspect]
     Indication: HYPOGAMMAGLOBULINAEMIA
     Dosage: SEE IMAGE
     Route: 058
     Dates: start: 20110513
  9. HIZENTRA [Suspect]
     Indication: IMMUNODEFICIENCY
     Dosage: SEE IMAGE
     Route: 058
     Dates: start: 20110513
  10. HIZENTRA [Suspect]
     Indication: SELECTIVE IGM IMMUNODEFICIENCY
     Dosage: SEE IMAGE
     Route: 058
     Dates: start: 20110513
  11. HIZENTRA [Suspect]
     Indication: SELECTIVE IGA IMMUNODEFICIENCY
     Dosage: SEE IMAGE
     Route: 058
     Dates: start: 20110513
  12. HIZENTRA [Suspect]
     Indication: IMMUNODEFICIENCY COMMON VARIABLE
     Dosage: SEE IMAGE
     Route: 058
     Dates: start: 20110513
  13. HIZENTRA [Suspect]
     Indication: HYPOGAMMAGLOBULINAEMIA
     Dosage: SEE IMAGE
     Route: 058
     Dates: start: 20110928
  14. HIZENTRA [Suspect]
     Indication: IMMUNODEFICIENCY
     Dosage: SEE IMAGE
     Route: 058
     Dates: start: 20110928
  15. HIZENTRA [Suspect]
     Indication: SELECTIVE IGM IMMUNODEFICIENCY
     Dosage: SEE IMAGE
     Route: 058
     Dates: start: 20110928
  16. HIZENTRA [Suspect]
     Indication: SELECTIVE IGA IMMUNODEFICIENCY
     Dosage: SEE IMAGE
     Route: 058
     Dates: start: 20110928
  17. HIZENTRA [Suspect]
     Indication: IMMUNODEFICIENCY COMMON VARIABLE
     Dosage: SEE IMAGE
     Route: 058
     Dates: start: 20110928
  18. HIZENTRA [Suspect]
     Indication: HYPOGAMMAGLOBULINAEMIA
     Dosage: SEE IMAGE
     Route: 058
     Dates: start: 20120312, end: 20120312
  19. HIZENTRA [Suspect]
     Indication: IMMUNODEFICIENCY
     Dosage: SEE IMAGE
     Route: 058
     Dates: start: 20120312, end: 20120312
  20. HIZENTRA [Suspect]
     Indication: SELECTIVE IGM IMMUNODEFICIENCY
     Dosage: SEE IMAGE
     Route: 058
     Dates: start: 20120312, end: 20120312
  21. HIZENTRA [Suspect]
     Indication: SELECTIVE IGA IMMUNODEFICIENCY
     Dosage: SEE IMAGE
     Route: 058
     Dates: start: 20120312, end: 20120312
  22. HIZENTRA [Suspect]
     Indication: IMMUNODEFICIENCY COMMON VARIABLE
     Dosage: SEE IMAGE
     Route: 058
     Dates: start: 20120312, end: 20120312
  23. HIZENTRA [Suspect]
     Indication: HYPOGAMMAGLOBULINAEMIA
     Dosage: SEE IMAGE
     Route: 058
     Dates: start: 20111201
  24. HIZENTRA [Suspect]
     Indication: IMMUNODEFICIENCY
     Dosage: SEE IMAGE
     Route: 058
     Dates: start: 20111201
  25. HIZENTRA [Suspect]
     Indication: SELECTIVE IGM IMMUNODEFICIENCY
     Dosage: SEE IMAGE
     Route: 058
     Dates: start: 20111201
  26. HIZENTRA [Suspect]
     Indication: SELECTIVE IGA IMMUNODEFICIENCY
     Dosage: SEE IMAGE
     Route: 058
     Dates: start: 20111201
  27. HIZENTRA [Suspect]
     Indication: IMMUNODEFICIENCY COMMON VARIABLE
     Dosage: SEE IMAGE
     Route: 058
     Dates: start: 20111201
  28. ESTRADIOL [Concomitant]
  29. DEXILANT [Concomitant]
  30. HIZENTRA [Suspect]
  31. AZITHROMYCIN [Concomitant]
  32. PREDNISONE TAPER (PREDNISONE) [Concomitant]
  33. HIZENTRA [Suspect]
  34. RESTASIS [Concomitant]
  35. AMARYL [Concomitant]
  36. SYNTHROID (LEVOTHYROXNE SODIUM) [Concomitant]
  37. GABAPENTIN [Concomitant]
  38. SORIATANE [Concomitant]
  39. CLARITIN [Concomitant]
  40. DUONEB [Concomitant]
  41. TRAMADOL HCL [Concomitant]
  42. ISOSORBIDE (ISOSORBIDE) [Concomitant]
  43. LASIX [Concomitant]
  44. CLOBETASOL (CLOBETASOL) [Concomitant]
  45. DUONEB (COMBIVENT /01420901/) [Concomitant]
  46. ESTRADIOL [Concomitant]
  47. HIZENTRA [Suspect]
  48. ATENOLOL [Concomitant]
  49. METHOTREXATE [Concomitant]

REACTIONS (8)
  - INFUSION SITE ERYTHEMA [None]
  - SINUSITIS [None]
  - NAUSEA [None]
  - CHILLS [None]
  - GASTROENTERITIS VIRAL [None]
  - UPPER RESPIRATORY TRACT INFECTION [None]
  - INFUSION SITE PAIN [None]
  - VOMITING [None]
